FAERS Safety Report 21046527 (Version 1)
Quarter: 2022Q3

REPORT INFORMATION
  Report Type: Spontaneous
  Country: US (occurrence: None)
  Receive Date: 20220705
  Receipt Date: 20220705
  Transmission Date: 20221026
  Serious: No
  Sender: FDA-Public Use
  Company Number: None

PATIENT
  Sex: Female

DRUGS (1)
  1. HUMIRA [Suspect]
     Active Substance: ADALIMUMAB
     Indication: Ankylosing spondylitis
     Dosage: 40MG  EVERY 14 DAYS SQ?
     Route: 058
     Dates: start: 20220405

REACTIONS (4)
  - Blood cholesterol increased [None]
  - Decreased appetite [None]
  - Nausea [None]
  - Weight decreased [None]
